FAERS Safety Report 15463724 (Version 2)
Quarter: 2018Q4

REPORT INFORMATION
  Report Type: Spontaneous
  Country: US (occurrence: US)
  Receive Date: 20181004
  Receipt Date: 20181113
  Transmission Date: 20190204
  Serious: No
  Sender: FDA-Public Use
  Company Number: US-MITSUBISHI TANABE PHARMA CORPORATION-MPE2018-0023915

PATIENT
  Sex: Male

DRUGS (9)
  1. DIAZEPAM. [Concomitant]
     Active Substance: DIAZEPAM
     Route: 048
  2. TRICOR [Concomitant]
     Active Substance: FENOFIBRATE
     Route: 048
  3. LOSARTAN. [Concomitant]
     Active Substance: LOSARTAN
     Dosage: 100-12.5 MG
     Route: 048
  4. RADICAVA [Suspect]
     Active Substance: EDARAVONE
     Indication: AMYOTROPHIC LATERAL SCLEROSIS
     Route: 042
  5. RILUZOLE. [Concomitant]
     Active Substance: RILUZOLE
     Route: 048
  6. METOPROLOL. [Concomitant]
     Active Substance: METOPROLOL
     Route: 048
  7. ACETAMINOPHEN. [Concomitant]
     Active Substance: ACETAMINOPHEN
     Indication: PAIN
     Route: 048
  8. SYNTHROID [Concomitant]
     Active Substance: LEVOTHYROXINE SODIUM
     Route: 048
  9. OXYCODONE [Concomitant]
     Active Substance: OXYCODONE
     Dosage: 5/325 MG
     Route: 048

REACTIONS (1)
  - Urticaria [Recovering/Resolving]
